FAERS Safety Report 5695108-7 (Version None)
Quarter: 2008Q2

REPORT INFORMATION
  Report Type: 
  Country: None (occurrence: None)
  Receive Date: 20080404
  Receipt Date: 20080325
  Transmission Date: 20081010
  Serious: Yes (Other)
  Sender: FDA-Public Use
  Company Number: US-PFIZER INC-2008027066

PATIENT
  Sex: Female
  Weight: 63.1 kg

DRUGS (4)
  1. CHANTIX [Suspect]
     Indication: SMOKING CESSATION THERAPY
     Dates: start: 20080314, end: 20080319
  2. HYDROCHLOROTHIAZIDE [Concomitant]
  3. ATENOLOL [Concomitant]
  4. ATACAND [Concomitant]

REACTIONS (8)
  - BLOOD URINE PRESENT [None]
  - DYSURIA [None]
  - INSOMNIA [None]
  - NEPHROLITHIASIS [None]
  - POLYURIA [None]
  - RESTLESSNESS [None]
  - THROAT IRRITATION [None]
  - VOMITING [None]
